FAERS Safety Report 4330247-4 (Version None)
Quarter: 2004Q1

REPORT INFORMATION
  Report Type: 
  Country: None (occurrence: None)
  Receive Date: 20040329
  Receipt Date: 20040310
  Transmission Date: 20041129
  Serious: Yes (Hospitalization)
  Sender: FDA-Public Use
  Company Number: 2004GB00618

PATIENT
  Sex: Male

DRUGS (1)
  1. SEROQUEL [Suspect]
     Dates: start: 20010101

REACTIONS (1)
  - SUPRAVENTRICULAR TACHYCARDIA [None]
